FAERS Safety Report 17021813 (Version 16)
Quarter: 2020Q3

REPORT INFORMATION
  Report Type: Report from Study
  Country: PL (occurrence: PL)
  Receive Date: 20191112
  Receipt Date: 20200921
  Transmission Date: 20201102
  Serious: Yes (Death, Life-Threatening, Hospitalization)
  Sender: FDA-Public Use
  Company Number: PL-EISAI MEDICAL RESEARCH-EC-2019-065111

PATIENT
  Age: 67 Year
  Sex: Male
  Weight: 64.5 kg

DRUGS (9)
  1. LENVATINIB [Suspect]
     Active Substance: LENVATINIB
     Route: 048
     Dates: start: 20191103, end: 20191103
  2. PLACEBO [Suspect]
     Active Substance: UNSPECIFIED INGREDIENT
     Indication: HEPATOCELLULAR CARCINOMA
     Route: 041
     Dates: start: 20190814, end: 20190925
  3. PLACEBO [Suspect]
     Active Substance: UNSPECIFIED INGREDIENT
     Route: 041
     Dates: start: 20191016, end: 20191016
  4. LISINORATIO [Concomitant]
     Active Substance: LISINOPRIL
     Dates: start: 201401, end: 20191214
  5. AMLOZEK [Concomitant]
     Active Substance: AMLODIPINE BESYLATE
     Dates: start: 20190828, end: 20191214
  6. HALIDOR [Concomitant]
     Dates: start: 20190705, end: 20191214
  7. LENVATINIB [Suspect]
     Active Substance: LENVATINIB
     Indication: HEPATOCELLULAR CARCINOMA
     Dosage: STARTING DOSE AT 12 MG, FLUCTUATED DOSES
     Route: 048
     Dates: start: 20190814, end: 20191016
  8. LENVATINIB [Suspect]
     Active Substance: LENVATINIB
     Route: 048
     Dates: start: 20191017, end: 20191102
  9. CARVEDILOL RATIOPHARM [Concomitant]
     Active Substance: CARVEDILOL
     Dates: start: 201401, end: 20191214

REACTIONS (2)
  - Duodenal ulcer haemorrhage [Recovered/Resolved with Sequelae]
  - Abdominal pain [Recovered/Resolved]

NARRATIVE: CASE EVENT DATE: 20191101
